FAERS Safety Report 5137272-4 (Version None)
Quarter: 2006Q4

REPORT INFORMATION
  Report Type: 
  Country: None (occurrence: None)
  Receive Date: 20061030
  Receipt Date: 20051003
  Transmission Date: 20070319
  Serious: No
  Sender: FDA-Public Use
  Company Number: US-GLAXOSMITHKLINE-A0576718A

PATIENT
  Age: 72 Year
  Sex: Female

DRUGS (8)
  1. ADVAIR HFA [Suspect]
     Indication: DRUG USE FOR UNKNOWN INDICATION
     Dosage: 1PUFF TWICE PER DAY
     Route: 055
     Dates: start: 20020801
  2. CARTIA XT [Concomitant]
     Dosage: 240MG PER DAY
  3. KLOR-CON [Concomitant]
     Dosage: 20MEQ TWICE PER DAY
     Route: 065
  4. COMBIVENT [Concomitant]
  5. LANOXIN [Concomitant]
     Dosage: .125MG PER DAY
  6. WARFARIN SODIUM [Concomitant]
     Dosage: 5MG PER DAY
  7. FUROSEMIDE [Concomitant]
     Dosage: 40MG PER DAY
  8. OXYGEN [Concomitant]
     Route: 065

REACTIONS (4)
  - DRUG INEFFECTIVE [None]
  - DYSPNOEA [None]
  - MALAISE [None]
  - PHARMACEUTICAL PRODUCT COMPLAINT [None]
